FAERS Safety Report 14160725 (Version 1)
Quarter: 2017Q4

REPORT INFORMATION
  Report Type: Spontaneous
  Country: US (occurrence: US)
  Receive Date: 20171105
  Receipt Date: 20171105
  Transmission Date: 20180321
  Serious: No
  Sender: FDA-Public Use
  Company Number: US-SHIRE-US201722125

PATIENT
  Age: 63 Year
  Sex: Female

DRUGS (1)
  1. CINRYZE [Suspect]
     Active Substance: HUMAN C1-ESTERASE INHIBITOR
     Indication: HEREDITARY ANGIOEDEMA
     Dosage: 1000 IU, EVERY 4 DAYS
     Route: 042
     Dates: start: 20141001

REACTIONS (1)
  - Hereditary angioedema [Recovered/Resolved]

NARRATIVE: CASE EVENT DATE: 20170905
